FAERS Safety Report 8143519-2 (Version None)
Quarter: 2012Q1

REPORT INFORMATION
  Report Type: 
  Country: None (occurrence: None)
  Receive Date: 20120217
  Receipt Date: 20120214
  Transmission Date: 20120608
  Serious: Yes (Life-Threatening, Hospitalization)
  Sender: FDA-Public Use
  Company Number: JP-SANOFI-AVENTIS-2012SA001486

PATIENT
  Age: 40 Year
  Sex: Male

DRUGS (9)
  1. JANUVIA [Concomitant]
     Route: 048
  2. AMARYL [Suspect]
     Dosage: DOSE: OVERDOSEDOSE- 14 TABLETS
     Route: 048
     Dates: start: 20120101, end: 20120101
  3. AMARYL [Suspect]
     Indication: DIABETES MELLITUS
     Route: 065
  4. INSULIN [Concomitant]
     Dates: start: 20041201
  5. AMARYL [Suspect]
     Dosage: DOSE: OVERDOSEDOSE- 14 TABLETS
     Route: 048
     Dates: start: 20120101, end: 20120101
  6. ZOLPIDEM [Suspect]
     Indication: SUICIDE ATTEMPT
     Dosage: DOSE- 5MGX 2 TIMES= 10 TABLETS
     Route: 048
  7. MIGLITOL [Concomitant]
     Route: 048
  8. AMARYL [Suspect]
     Indication: SUICIDE ATTEMPT
     Route: 065
  9. ZOLPIDEM [Suspect]
     Route: 048
     Dates: start: 20120101

REACTIONS (4)
  - HYPOGLYCAEMIA [None]
  - SUICIDE ATTEMPT [None]
  - CARDIOMYOPATHY [None]
  - INTENTIONAL OVERDOSE [None]
